FAERS Safety Report 16820213 (Version 1)
Quarter: 2019Q3

REPORT INFORMATION
  Report Type: Other
  Country: GB (occurrence: GB)
  Receive Date: 20190918
  Receipt Date: 20190918
  Transmission Date: 20191005
  Serious: Yes (Other)
  Sender: FDA-Public Use
  Company Number: GB-CELLTRION INC.-2019GB024692

PATIENT

DRUGS (2)
  1. INFLIXIMAB (UNKNOWN) [Suspect]
     Active Substance: INFLIXIMAB
     Indication: CROHN^S DISEASE
     Dosage: 200 MG
     Route: 042
  2. PIZOTIFEN [Concomitant]
     Active Substance: PIZOTYLINE

REACTIONS (8)
  - Depressed mood [Recovered/Resolved]
  - Discomfort [Recovered/Resolved]
  - Pain [Recovered/Resolved]
  - Rash generalised [Recovered/Resolved]
  - Retching [Recovered/Resolved]
  - Erythema [Recovered/Resolved]
  - Swelling face [Recovered/Resolved]
  - Nausea [Recovered/Resolved]

NARRATIVE: CASE EVENT DATE: 20190807
